FAERS Safety Report 7277789-X (Version None)
Quarter: 2011Q1

REPORT INFORMATION
  Report Type: 
  Country: None (occurrence: None)
  Receive Date: 20110207
  Receipt Date: 20110126
  Transmission Date: 20110831
  Serious: Yes (Other)
  Sender: FDA-Public Use
  Company Number: CO-SANOFI-AVENTIS-2011SA005627

PATIENT
  Age: 51 Year
  Sex: Male
  Weight: 92 kg

DRUGS (12)
  1. VALSARTAN [Concomitant]
     Route: 048
     Dates: start: 20090101
  2. PROPAFENONE [Concomitant]
     Indication: ATRIAL FIBRILLATION
     Dates: start: 20101213, end: 20101214
  3. MULTAQ [Suspect]
     Indication: ATRIAL FIBRILLATION
     Route: 048
     Dates: start: 20101215, end: 20110112
  4. ATORVASTATIN [Suspect]
     Dates: start: 20090101, end: 20110125
  5. FLUOXETINE [Suspect]
     Indication: DEPRESSION
     Route: 048
     Dates: start: 20110115, end: 20110125
  6. ASPIRIN [Concomitant]
     Route: 048
     Dates: start: 20090101
  7. DIAZEPAM [Concomitant]
     Indication: ANXIETY
     Dates: start: 20101215, end: 20101215
  8. WARFARIN [Concomitant]
     Indication: ATRIAL FIBRILLATION
     Dates: start: 20101213, end: 20101213
  9. XANAX [Suspect]
     Indication: ANXIETY
     Route: 048
     Dates: start: 20101215, end: 20110125
  10. CELECOXIB [Suspect]
     Route: 048
     Dates: start: 20110115, end: 20110125
  11. SOTALOL HCL [Suspect]
     Indication: ATRIAL FIBRILLATION
     Route: 048
     Dates: start: 20110112, end: 20110125
  12. METOPROLOL TARTRATE [Suspect]
     Route: 048
     Dates: start: 20101101, end: 20110125

REACTIONS (9)
  - CHOLURIA [None]
  - CHILLS [None]
  - VOMITING [None]
  - HYPOACUSIS [None]
  - DEPRESSION [None]
  - CHEST PAIN [None]
  - FATIGUE [None]
  - HEPATOTOXICITY [None]
  - NAUSEA [None]
